FAERS Safety Report 10480640 (Version 1)
Quarter: 2014Q3

REPORT INFORMATION
  Report Type: Spontaneous
  Country: US (occurrence: None)
  Receive Date: 20140926
  Receipt Date: 20140926
  Transmission Date: 20150326
  Serious: Yes (Hospitalization)
  Sender: FDA-Public Use
  Company Number: None

PATIENT
  Age: 66 Year
  Sex: Male
  Weight: 64.1 kg

DRUGS (3)
  1. CARBOPLATIN. [Suspect]
     Active Substance: CARBOPLATIN
  2. ETOPOSIDE. [Suspect]
     Active Substance: ETOPOSIDE
  3. IFOSFAMIDE. [Suspect]
     Active Substance: IFOSFAMIDE

REACTIONS (11)
  - Fatigue [None]
  - Orthostatic hypotension [None]
  - White blood cell count decreased [None]
  - Lethargy [None]
  - Dysphagia [None]
  - Thrombocytopenia [None]
  - Pyrexia [None]
  - Dehydration [None]
  - Neutropenia [None]
  - Chills [None]
  - Odynophagia [None]

NARRATIVE: CASE EVENT DATE: 20140812
